FAERS Safety Report 10625149 (Version 1)
Quarter: 2014Q4

REPORT INFORMATION
  Report Type: Spontaneous
  Country: AU (occurrence: None)
  Receive Date: 20141202
  Receipt Date: 20141202
  Transmission Date: 20150529
  Serious: Yes (Death, Other)
  Sender: FDA-Public Use
  Company Number: AU-ALSI-201400237

PATIENT
  Age: 02 Year

DRUGS (3)
  1. SEVOFLURANE. [Suspect]
     Active Substance: SEVOFLURANE
     Indication: DENTAL OPERATION
  2. NITROUS OXIDE. [Suspect]
     Active Substance: NITROUS OXIDE
     Indication: DENTAL OPERATION
     Dosage: RESPIRATORY
     Route: 055
  3. CISATRACURIUM [Suspect]
     Active Substance: CISATRACURIUM

REACTIONS (4)
  - Ventricular fibrillation [None]
  - Cardiac arrest [None]
  - Bradycardia [None]
  - Nervous system disorder [None]
